FAERS Safety Report 6300582-9 (Version None)
Quarter: 2009Q3

REPORT INFORMATION
  Report Type: 
  Country: None (occurrence: None)
  Receive Date: 20090806
  Receipt Date: 20090429
  Transmission Date: 20100115
  Serious: No
  Sender: FDA-Public Use
  Company Number: US-ABBOTT-09P-163-0570760-00

PATIENT
  Sex: Female
  Weight: 54.48 kg

DRUGS (1)
  1. DEPAKOTE ER [Suspect]
     Indication: BIPOLAR DISORDER
     Route: 048
     Dates: start: 20090410

REACTIONS (5)
  - FEELING COLD [None]
  - INITIAL INSOMNIA [None]
  - INSOMNIA [None]
  - SOMNOLENCE [None]
  - TACHYPHRENIA [None]
